FAERS Safety Report 11857697 (Version 1)
Quarter: 2015Q4

REPORT INFORMATION
  Report Type: Spontaneous
  Country: US (occurrence: None)
  Receive Date: 20151221
  Receipt Date: 20151221
  Transmission Date: 20160305
  Serious: No
  Sender: FDA-Public Use
  Company Number: None

PATIENT
  Age: 68 Year
  Sex: Female

DRUGS (8)
  1. AMLODIPINE [Concomitant]
     Active Substance: AMLODIPINE BESYLATE
  2. DARIFENACIN [Concomitant]
     Active Substance: DARIFENACIN
  3. AMPYRA [Suspect]
     Active Substance: DALFAMPRIDINE
     Indication: MULTIPLE SCLEROSIS
     Route: 048
     Dates: start: 201308
  4. LISINOPRIL-HCTA [Concomitant]
  5. DULOXETINE. [Concomitant]
     Active Substance: DULOXETINE
  6. AUBAGIO [Concomitant]
     Active Substance: TERIFLUNOMIDE
  7. PREGABALIN. [Concomitant]
     Active Substance: PREGABALIN
  8. BACLOFEN. [Concomitant]
     Active Substance: BACLOFEN

REACTIONS (1)
  - Urinary tract infection [None]

NARRATIVE: CASE EVENT DATE: 20151210
